FAERS Safety Report 11239685 (Version 3)
Quarter: 2015Q3

REPORT INFORMATION
  Report Type: Report from Study
  Country: ZA (occurrence: ZA)
  Receive Date: 20150706
  Receipt Date: 20150807
  Transmission Date: 20151125
  Serious: Yes (Death, Life-Threatening, Other)
  Sender: FDA-Public Use
  Company Number: ZA-JNJFOC-20150623648

PATIENT
  Age: 34 Year
  Sex: Male
  Weight: 42.5 kg

DRUGS (12)
  1. SIRTURO [Suspect]
     Active Substance: BEDAQUILINE FUMARATE
     Indication: PULMONARY TUBERCULOSIS
     Route: 048
     Dates: end: 20150625
  2. LINEZOLID. [Suspect]
     Active Substance: LINEZOLID
     Indication: PULMONARY TUBERCULOSIS
     Dosage: FOR EVERY 7 DAYS
     Route: 065
     Dates: start: 20150522, end: 20150625
  3. EFAVIRENZ, EMTRICITABINE, AND TENOFOVIR DISOPROXIL [Concomitant]
     Route: 065
     Dates: start: 20130426
  4. POTASSIUM CHLORIDE. [Concomitant]
     Active Substance: POTASSIUM CHLORIDE
     Route: 065
     Dates: start: 20150422, end: 20150506
  5. LANSOPRAZOLE. [Concomitant]
     Active Substance: LANSOPRAZOLE
     Route: 065
     Dates: start: 20150422, end: 20150505
  6. ULTIMAG [Concomitant]
     Route: 065
     Dates: start: 20150422, end: 20150506
  7. PA-824 [Suspect]
     Active Substance: PRETOMANID
     Indication: PULMONARY TUBERCULOSIS
     Dosage: FOR EVERY 7 DAYS
     Route: 065
     Dates: start: 20150522, end: 20150625
  8. SIRTURO [Suspect]
     Active Substance: BEDAQUILINE FUMARATE
     Indication: PULMONARY TUBERCULOSIS
     Dosage: FOR 14 DAYS
     Route: 048
     Dates: start: 20150522
  9. LAMIVUDINE. [Concomitant]
     Active Substance: LAMIVUDINE
     Route: 065
     Dates: start: 20150522
  10. NEVIRAPINE. [Concomitant]
     Active Substance: NEVIRAPINE
     Route: 065
     Dates: start: 20150522
  11. CIMETIDINE [Concomitant]
     Active Substance: CIMETIDINE
     Route: 066
     Dates: start: 20150611
  12. TENOFOVIR DISOPROXIL FUMARATE. [Concomitant]
     Active Substance: TENOFOVIR DISOPROXIL FUMARATE
     Route: 065
     Dates: start: 20150522

REACTIONS (2)
  - Pulmonary tuberculosis [Fatal]
  - Disseminated tuberculosis [Fatal]

NARRATIVE: CASE EVENT DATE: 20150624
